FAERS Safety Report 7604716-5 (Version None)
Quarter: 2011Q3

REPORT INFORMATION
  Report Type: 
  Country: None (occurrence: None)
  Receive Date: 20110712
  Receipt Date: 20081106
  Transmission Date: 20111222
  Serious: Yes (Hospitalization)
  Sender: FDA-Public Use
  Company Number: US-BAXTER-2011BH021476

PATIENT

DRUGS (2)
  1. POTASSIUM CHLORIDE IN PLASTIC CONTAINER [Suspect]
     Indication: PRODUCT USED FOR UNKNOWN INDICATION
     Route: 065
  2. GENTAMICIN SULFATE [Suspect]
     Indication: PRODUCT USED FOR UNKNOWN INDICATION
     Route: 065

REACTIONS (2)
  - WRONG DRUG ADMINISTERED [None]
  - DRUG LABEL CONFUSION [None]
